FAERS Safety Report 6999081-0 (Version None)
Quarter: 2010Q3

REPORT INFORMATION
  Report Type: 
  Country: None (occurrence: None)
  Receive Date: 20100920
  Receipt Date: 20100913
  Transmission Date: 20110219
  Serious: Yes (Other)
  Sender: FDA-Public Use
  Company Number: JP-BAYER-201014390BYL

PATIENT
  Age: 76 Year
  Sex: Male
  Weight: 56 kg

DRUGS (8)
  1. NEXAVAR [Suspect]
     Indication: HEPATIC NEOPLASM MALIGNANT
     Dosage: UNIT DOSE: 200 MG
     Route: 048
     Dates: start: 20100823, end: 20100826
  2. AMLODIPINE [Concomitant]
     Indication: HYPERTENSION
     Dosage: UNIT DOSE: 5 MG
     Route: 048
     Dates: start: 20090202
  3. PARIET [Concomitant]
     Indication: GASTRIC ULCER
     Dosage: UNIT DOSE: 10 MG
     Route: 048
     Dates: start: 20100728
  4. AMINOLEBAN EN [Concomitant]
     Indication: HEPATIC CIRRHOSIS
     Dosage: UNIT DOSE: 50 MG
     Route: 048
     Dates: start: 20100810
  5. LICKLE [Concomitant]
     Indication: HEPATIC CIRRHOSIS
     Dosage: UNIT DOSE: 4.74 G
     Route: 048
     Dates: start: 20080421
  6. GLYCYRON [Concomitant]
     Indication: HEPATIC CIRRHOSIS
     Route: 048
     Dates: start: 20060318
  7. ALLOID G [Concomitant]
     Indication: GASTRIC ULCER
     Dosage: UNIT DOSE: 2 %
     Route: 048
     Dates: start: 20100727
  8. FASTIC [Concomitant]
     Indication: DIABETES MELLITUS
     Dosage: UNIT DOSE: 90 MG
     Route: 048
     Dates: start: 20090202

REACTIONS (1)
  - DELIRIUM [None]
